FAERS Safety Report 6307309-5 (Version None)
Quarter: 2009Q3

REPORT INFORMATION
  Report Type: 
  Country: None (occurrence: None)
  Receive Date: 20090813
  Receipt Date: 20070817
  Transmission Date: 20100115
  Serious: Yes (Disabling)
  Sender: FDA-Public Use
  Company Number: US-ASTRAZENECA-2006UW07029

PATIENT
  Age: 14899 Day
  Sex: Female

DRUGS (12)
  1. SEROQUEL [Suspect]
     Indication: AFFECTIVE DISORDER
     Dosage: STRENGTH-25MG, 100MG, 200MG, 400MG DOSE 50MG TO 400MG
     Route: 048
  2. CELEXA [Concomitant]
     Dosage: DOSE 30MG TO 40 MG EVERY MORNING.
     Dates: start: 20020101
  3. LTHOBID [Concomitant]
     Dosage: DOSE 150MG TO 900 MG DAILY
     Route: 048
     Dates: start: 20020101
  4. CLONAZEPAM [Concomitant]
     Indication: INSOMNIA
     Dosage: DOSE 0.5MG TO 3 MG DAILY
     Route: 048
     Dates: start: 20020101
  5. TOPAMAX [Concomitant]
     Indication: AFFECTIVE DISORDER
     Dosage: DOSE 25 MG TO 100 MG DAILY
     Dates: start: 20020919
  6. HYDROCHLOROTHIAZIDE [Concomitant]
     Dosage: DOSE-25MG TO 75MG
     Dates: start: 20020101, end: 20050101
  7. LEXAPRO [Concomitant]
     Dosage: DOSE 10MG TO 20MG DAILY
     Route: 048
     Dates: start: 20040101
  8. NEXIUM [Concomitant]
     Route: 048
     Dates: start: 20050101
  9. ASPIRIN [Concomitant]
     Dosage: DOSE 81MG TO 325MG DAILY
     Route: 048
     Dates: start: 20050101
  10. TOPROL-XL [Concomitant]
     Route: 048
     Dates: start: 20050101
  11. DYAZIDE [Concomitant]
     Dosage: DOSE-37.5/25MG 1 TABLET Q MONDAY, WEDNESDAY AND FRIDAY
     Dates: start: 20050101
  12. LAMICTAL [Concomitant]
     Route: 048
     Dates: start: 20050101

REACTIONS (3)
  - DIABETES MELLITUS [None]
  - HYPERGLYCAEMIA [None]
  - TYPE 2 DIABETES MELLITUS [None]
